FAERS Safety Report 14827874 (Version 2)
Quarter: 2018Q2

REPORT INFORMATION
  Report Type: Spontaneous
  Country: RS (occurrence: RS)
  Receive Date: 20180430
  Receipt Date: 20180607
  Transmission Date: 20180711
  Serious: Yes (Other)
  Sender: FDA-Public Use
  Company Number: RS-PFIZER INC-2018170848

PATIENT
  Age: 72 Year
  Sex: Male

DRUGS (2)
  1. CYTARABINE. [Suspect]
     Active Substance: CYTARABINE
     Indication: ACUTE MONOCYTIC LEUKAEMIA
     Dosage: 20 MG, 2X/DAY, (CYTARABINE 2 ? 20 MG/SC DURING THE NEXT TEN DAYS)
     Route: 058
  2. HYDROXYCARBAMIDE [Suspect]
     Active Substance: HYDROXYUREA
     Indication: ACUTE MONOCYTIC LEUKAEMIA
     Dosage: 500 MG, 2X/DAY

REACTIONS (4)
  - Sinusitis [Recovered/Resolved]
  - Bone marrow failure [Unknown]
  - Febrile neutropenia [Unknown]
  - Mucormycosis [Recovered/Resolved]
